FAERS Safety Report 10206954 (Version 1)
Quarter: 2014Q2

REPORT INFORMATION
  Report Type: Spontaneous
  Country: US (occurrence: US)
  Receive Date: 20140530
  Receipt Date: 20140530
  Transmission Date: 20141212
  Serious: Yes (Hospitalization)
  Sender: FDA-Public Use
  Company Number: US-B.I. PHARMACEUTICALS,INC./RIDGEFIELD-2014-BI-23237BP

PATIENT
  Age: 36 Year
  Sex: Female

DRUGS (5)
  1. SPIRIVA [Suspect]
     Indication: ASTHMA
     Dosage: 36 MCG
     Route: 055
     Dates: start: 2012
  2. COMBIVENT [Suspect]
     Indication: ASTHMA
     Dosage: DOSE PER APPLICATION: 18 MCG / 103 MCG
     Route: 055
     Dates: start: 1997, end: 2012
  3. COMBIVENT [Suspect]
     Indication: ASTHMA
     Dosage: DOSE PER APPLICATION: 20 MCG / 100 MCG; DAILY DOSE: 80 MCG/ 400 MCG
     Route: 055
     Dates: start: 2012
  4. DULERA [Concomitant]
     Route: 055
  5. ACCOLATE [Concomitant]
     Route: 048

REACTIONS (5)
  - Pulmonary embolism [Recovered/Resolved]
  - Prescribed overdose [Unknown]
  - Off label use [Unknown]
  - Off label use [Not Recovered/Not Resolved]
  - Off label use [Unknown]
